FAERS Safety Report 18599952 (Version 1)
Quarter: 2020Q4

REPORT INFORMATION
  Report Type: Spontaneous
  Country: US (occurrence: US)
  Receive Date: 20201209
  Receipt Date: 20201209
  Transmission Date: 20210114
  Serious: Yes (Life-Threatening)
  Sender: FDA-Public Use
  Company Number: None

PATIENT
  Age: 33 Year
  Sex: Female
  Weight: 126 kg

DRUGS (1)
  1. FLUCONAZOLE. [Suspect]
     Active Substance: FLUCONAZOLE
     Indication: FUNGAL INFECTION
     Route: 048
     Dates: start: 20201106, end: 20201106

REACTIONS (15)
  - Nasal inflammation [None]
  - Stomatitis [None]
  - Drug ineffective [None]
  - Erythema [None]
  - Urticaria [None]
  - Ocular hyperaemia [None]
  - Eye swelling [None]
  - Lip swelling [None]
  - Cheilitis [None]
  - Eye inflammation [None]
  - Oral mucosal erythema [None]
  - Lip erythema [None]
  - Drug hypersensitivity [None]
  - Mouth swelling [None]
  - Swelling face [None]

NARRATIVE: CASE EVENT DATE: 20201106
